FAERS Safety Report 21399692 (Version 1)
Quarter: 2022Q4

REPORT INFORMATION
  Report Type: Spontaneous
  Country: DE (occurrence: DE)
  Receive Date: 20221001
  Receipt Date: 20221001
  Transmission Date: 20230113
  Serious: Yes (Hospitalization, Other)
  Sender: FDA-Public Use
  Company Number: DE-ADRED-04862-03

PATIENT
  Age: 78 Year
  Sex: Male

DRUGS (9)
  1. CAPECITABINE [Suspect]
     Active Substance: CAPECITABINE
     Indication: Product used for unknown indication
     Dosage: SCHEME
     Route: 065
  2. IRINOTECAN [Suspect]
     Active Substance: IRINOTECAN
     Indication: Product used for unknown indication
     Dosage: SCHEME
     Route: 065
  3. CETUXIMAB [Suspect]
     Active Substance: CETUXIMAB
     Indication: Product used for unknown indication
     Dosage: SCHEME
  4. CAPECITABINE [Concomitant]
     Active Substance: CAPECITABINE
     Indication: Product used for unknown indication
     Dosage: 2 DOSAGE FORMS DAILY; 500 MG, 1-0-1-0, UNIT DOSE : 1 DF , FREQUENCY : BD
  5. AMIODARONE [Concomitant]
     Active Substance: AMIODARONE
     Indication: Product used for unknown indication
     Dosage: 1 DOSAGE FORMS DAILY; 200 MG, 1-0-0-0, UNIT DOSE : 1 DF , FREQUENCY : OD
  6. LERCANIDIPINE [Concomitant]
     Active Substance: LERCANIDIPINE
     Indication: Product used for unknown indication
     Dosage: 1 DOSAGE FORMS DAILY; 10 MG, 0-0-1-0, UNIT DOSE : 1 DF , FREQUENCY : OD
  7. HYDROCHLOROTHIAZIDE [Concomitant]
     Active Substance: HYDROCHLOROTHIAZIDE
     Indication: Product used for unknown indication
     Dosage: 1 DOSAGE FORMS DAILY; 25 MG, 1-0-0-0, UNIT DOSE : 1 DF , FREQUENCY : OD
  8. CANDESARTAN [Concomitant]
     Active Substance: CANDESARTAN
     Indication: Product used for unknown indication
     Dosage: 1 DOSAGE FORMS DAILY; 8 MG, 0-0-1-0, UNIT DOSE : 1 DF , FREQUENCY : OD
  9. SPIRONOLACTONE [Concomitant]
     Active Substance: SPIRONOLACTONE
     Indication: Product used for unknown indication
     Dosage: 1 DOSAGE FORMS DAILY; 50 MG, 1-0-0-0, UNIT DOSE : 1 DF , FREQUENCY : OD

REACTIONS (9)
  - Hypotension [Unknown]
  - Syncope [Unknown]
  - Systemic infection [Unknown]
  - Nausea [Unknown]
  - Electrocardiogram abnormal [Unknown]
  - General physical health deterioration [Unknown]
  - Anaphylactic reaction [Unknown]
  - Loss of consciousness [Unknown]
  - Urinary incontinence [Unknown]

NARRATIVE: CASE EVENT DATE: 20210629
